FAERS Safety Report 13497322 (Version 2)
Quarter: 2017Q2

REPORT INFORMATION
  Report Type: Report from Study
  Country: CA (occurrence: CA)
  Receive Date: 20170430
  Receipt Date: 20170508
  Transmission Date: 20170830
  Serious: Yes (Hospitalization, Other)
  Sender: FDA-Public Use
  Company Number: CA-AMGEN-CANSL2017064013

PATIENT
  Age: 51 Year
  Sex: Male
  Weight: 110 kg

DRUGS (5)
  1. KYPROLIS [Suspect]
     Active Substance: CARFILZOMIB
     Dosage: UNK
     Route: 042
     Dates: start: 20170424
  2. KYPROLIS [Suspect]
     Active Substance: CARFILZOMIB
     Indication: PLASMA CELL MYELOMA
     Dosage: 59 MG, ON DAY 1, 2, 8, 9, 15, 16 FOR 28 DAYS
     Route: 042
     Dates: start: 20160614
  3. LENALIDOMIDE [Concomitant]
     Active Substance: LENALIDOMIDE
     Indication: PLASMA CELL MYELOMA
     Dosage: 15 MG, ON DAY 1 TO 21
     Route: 048
     Dates: start: 20160614
  4. KYPROLIS [Suspect]
     Active Substance: CARFILZOMIB
     Dosage: 59 MG, ON DAY 1, 2, 8, 9, 15, 16 FOR 28 DAYS
     Route: 042
     Dates: start: 20170502
  5. DEXAMETHASONE. [Concomitant]
     Active Substance: DEXAMETHASONE
     Indication: PREMEDICATION
     Dosage: 12 MG, ON DAY 1, 8, 15
     Route: 048
     Dates: start: 20160614

REACTIONS (9)
  - Poor quality drug administered [Unknown]
  - Heart rate increased [Unknown]
  - Fatigue [Recovered/Resolved]
  - Underdose [Unknown]
  - Hypertension [Recovered/Resolved]
  - Product preparation error [Unknown]
  - Nausea [Unknown]
  - Chromaturia [Recovered/Resolved]
  - Tremor [Recovered/Resolved]

NARRATIVE: CASE EVENT DATE: 20170424
